FAERS Safety Report 21119271 (Version 5)
Quarter: 2022Q4

REPORT INFORMATION
  Report Type: Spontaneous
  Country: US (occurrence: US)
  Receive Date: 20220722
  Receipt Date: 20221027
  Transmission Date: 20230112
  Serious: Yes (Other)
  Sender: FDA-Public Use
  Company Number: US-BAYER-2022A096752

PATIENT
  Age: 36 Year
  Sex: Male

DRUGS (16)
  1. KOVALTRY [Suspect]
     Active Substance: ANTIHEMOPHILIC FACTOR, HUMAN RECOMBINANT
     Indication: Factor VIII deficiency
     Dosage: 3000 IU, TID
     Route: 042
  2. KOVALTRY [Suspect]
     Active Substance: ANTIHEMOPHILIC FACTOR, HUMAN RECOMBINANT
     Indication: Factor VIII deficiency
     Dosage: 3000 IU, PRN
     Route: 042
  3. KOVALTRY [Suspect]
     Active Substance: ANTIHEMOPHILIC FACTOR, HUMAN RECOMBINANT
     Indication: Factor VIII deficiency
     Dosage: 3000 IU, PRN
     Route: 042
  4. KOVALTRY [Suspect]
     Active Substance: ANTIHEMOPHILIC FACTOR, HUMAN RECOMBINANT
     Indication: Factor VIII deficiency
     Dosage: 7 DF, FOR THE LEFT SHOULDER, LEFT AND RIGHT ELBOW BLEEDS TREATMENT
  5. KOVALTRY [Suspect]
     Active Substance: ANTIHEMOPHILIC FACTOR, HUMAN RECOMBINANT
     Indication: Factor VIII deficiency
     Dosage: 6 DF, FOR THE RIGHT SHOULDER, CLAVICLE AND ELBOWBLEEDS TREATMENT
  6. KOVALTRY [Suspect]
     Active Substance: ANTIHEMOPHILIC FACTOR, HUMAN RECOMBINANT
     Indication: Factor VIII deficiency
     Dosage: 3 DF, TO TREAT LEFT SHOULDER/CLAVICLE, LEFT ELBOW AND LEFT KNEE BLEEDS
  7. GABAPENTIN [Concomitant]
     Active Substance: GABAPENTIN
  8. ZINC [Concomitant]
     Active Substance: ZINC
  9. AMLODIPINE [Concomitant]
     Active Substance: AMLODIPINE BESYLATE
  10. BEPOTASTINE BESYLATE [Concomitant]
     Active Substance: BEPOTASTINE BESYLATE
  11. TRAMADOL [Concomitant]
     Active Substance: TRAMADOL
  12. HYDROCHLORIC ACID [Concomitant]
     Active Substance: HYDROCHLORIC ACID
  13. LOSARTAN [Concomitant]
     Active Substance: LOSARTAN
  14. POTASSIUM [Concomitant]
     Active Substance: POTASSIUM
  15. BREO ELLIPTA [Concomitant]
     Active Substance: FLUTICASONE FUROATE\VILANTEROL TRIFENATATE
  16. ALBUTEROL SULFATE [Concomitant]
     Active Substance: ALBUTEROL SULFATE

REACTIONS (12)
  - Haemarthrosis [None]
  - Haemarthrosis [None]
  - Osteorrhagia [None]
  - Haemarthrosis [Recovering/Resolving]
  - Haemarthrosis [Recovering/Resolving]
  - Haemarthrosis [None]
  - Haemarthrosis [None]
  - Osteorrhagia [None]
  - Haemarthrosis [None]
  - Osteorrhagia [None]
  - Haemarthrosis [None]
  - Haemarthrosis [None]
